FAERS Safety Report 8339743 (Version 2)
Quarter: 2013Q1

REPORT INFORMATION
  Report Type: Spontaneous
  Country: US (occurrence: None)
  Receive Date: 20120109
  Receipt Date: 20121106
  Transmission Date: 20140127
  Serious: Yes (Other)
  Sender: FDA-Public Use
  Company Number: 2011-5280

PATIENT
  Sex: Male
  Weight: 15.6 kg

DRUGS (1)
  1. INCRELEX [Suspect]
     Dosage: (18 UNITS, 2 IN 1 D)
     Route: 058
     Dates: start: 20100821, end: 201104

REACTIONS (1)
  - LYMPHOMA [None]
